FAERS Safety Report 23760719 (Version 2)
Quarter: 2024Q2

REPORT INFORMATION
  Report Type: Spontaneous
  Country: GB (occurrence: GB)
  Receive Date: 20240419
  Receipt Date: 20240429
  Transmission Date: 20240716
  Serious: Yes (Life-Threatening, Hospitalization, Other)
  Sender: FDA-Public Use
  Company Number: None

PATIENT
  Age: 41 Year
  Sex: Male

DRUGS (14)
  1. MONTELUKAST SODIUM [Suspect]
     Active Substance: MONTELUKAST SODIUM
     Indication: Asthma
     Dosage: 10 MILLIGRAM, QD, AT NIGHT
     Route: 048
     Dates: end: 20240218
  2. CALCIUM [Concomitant]
     Active Substance: CALCIUM
     Dosage: UNK
     Route: 048
     Dates: start: 20230330
  3. CANDESARTAN [Concomitant]
     Active Substance: CANDESARTAN
     Indication: Cardiac failure
     Dosage: UNK
     Route: 048
     Dates: start: 202202
  4. CITALOPRAM [Concomitant]
     Active Substance: CITALOPRAM\CITALOPRAM HYDROBROMIDE
     Dosage: UNK
     Route: 048
  5. EPLERENONE [Concomitant]
     Active Substance: EPLERENONE
     Indication: Cardiac failure
     Dosage: UNK
     Route: 048
  6. FEXOFENADINE [Concomitant]
     Active Substance: FEXOFENADINE HYDROCHLORIDE
     Dosage: UNK
     Route: 048
  7. FOSTER [Concomitant]
     Active Substance: BECLOMETHASONE\FORMOTEROL
     Dosage: UNK
     Route: 055
  8. BUTYLSCOPOLAMINE BROMIDE [Concomitant]
     Active Substance: BUTYLSCOPOLAMINE BROMIDE
     Dosage: UNK
  9. LANSOPRAZOLE [Concomitant]
     Active Substance: LANSOPRAZOLE
     Dosage: UNK
     Route: 048
  10. MYCOPHENOLATE MOFETIL [Concomitant]
     Active Substance: MYCOPHENOLATE MOFETIL
     Indication: Eosinophilic granulomatosis with polyangiitis
     Dosage: UNK
  11. NEBIVOLOL [Concomitant]
     Active Substance: NEBIVOLOL
     Indication: Cardiac failure
     Dosage: UNK
     Route: 048
  12. NIFEDIPINE [Concomitant]
     Active Substance: NIFEDIPINE
     Dosage: UNK
     Route: 048
  13. PREDNISONE [Concomitant]
     Active Substance: PREDNISONE
     Dosage: UNK
     Route: 048
  14. WARFARIN [Concomitant]
     Active Substance: WARFARIN
     Indication: Cerebrovascular accident
     Dosage: UNK
     Route: 048

REACTIONS (5)
  - Eosinophilic granulomatosis with polyangiitis [Recovering/Resolving]
  - Cardiac failure [Unknown]
  - Retinal vein occlusion [Unknown]
  - Cerebrovascular accident [Unknown]
  - Hypereosinophilic syndrome [Unknown]

NARRATIVE: CASE EVENT DATE: 20220201
